FAERS Safety Report 9490454 (Version 1)
Quarter: 2013Q3

REPORT INFORMATION
  Report Type: Spontaneous
  Country: US (occurrence: US)
  Receive Date: 20130830
  Receipt Date: 20130830
  Transmission Date: 20140515
  Serious: No
  Sender: FDA-Public Use
  Company Number: US-009507513-1308USA014564

PATIENT
  Age: 53 Year
  Sex: Female

DRUGS (1)
  1. PROVENTIL [Suspect]
     Indication: ASTHMA
     Dosage: 2 PUFFS AS NEEDED, PRN
     Route: 055
     Dates: start: 2011

REACTIONS (2)
  - Dyspnoea [Not Recovered/Not Resolved]
  - Device malfunction [Unknown]
